FAERS Safety Report 11297246 (Version 1)
Quarter: 2015Q3

REPORT INFORMATION
  Report Type: Spontaneous
  Country: US (occurrence: US)
  Receive Date: 20150722
  Receipt Date: 20150722
  Transmission Date: 20151125
  Serious: No
  Sender: FDA-Public Use
  Company Number: US-ELI_LILLY_AND_COMPANY-US200804000140

PATIENT
  Age: 43 Year
  Sex: Female

DRUGS (1)
  1. HUMATROPE [Suspect]
     Active Substance: SOMATROPIN
     Indication: ENDOMETRIOSIS
     Dosage: UNK, UNKNOWN
     Dates: start: 1993, end: 1995

REACTIONS (3)
  - Weight decreased [Recovered/Resolved]
  - Blood pressure increased [Unknown]
  - Endometriosis [Not Recovered/Not Resolved]
